FAERS Safety Report 18618075 (Version 1)
Quarter: 2020Q4

REPORT INFORMATION
  Report Type: Spontaneous
  Country: AU (occurrence: AU)
  Receive Date: 20201215
  Receipt Date: 20201215
  Transmission Date: 20210114
  Serious: Yes (Death, Other)
  Sender: FDA-Public Use
  Company Number: AU-GLAXOSMITHKLINE-AU2020GSK241258

PATIENT
  Age: 68 Year
  Sex: Male

DRUGS (9)
  1. MYCOPHENOLATE MOFETIL. [Suspect]
     Active Substance: MYCOPHENOLATE MOFETIL
     Indication: IMMUNOSUPPRESSANT DRUG THERAPY
     Dosage: UNK 500MG MANE AND 250MG NOCTE
  2. GANCICLOVIR. [Suspect]
     Active Substance: GANCICLOVIR
     Indication: CYTOMEGALOVIRUS INFECTION
     Dosage: UNK
     Route: 042
  3. PREDNISOLONE. [Suspect]
     Active Substance: PREDNISOLONE
     Indication: IMMUNOSUPPRESSANT DRUG THERAPY
     Dosage: 5 MG, QD
  4. MYCOPHENOLATE MOFETIL. [Suspect]
     Active Substance: MYCOPHENOLATE MOFETIL
     Dosage: 250 MG, BID
  5. VALGANCICLOVIR. [Suspect]
     Active Substance: VALGANCICLOVIR
     Indication: CYTOMEGALOVIRUS INFECTION
     Dosage: 450 MG, QD
  6. MUROMONAB CD3 [Suspect]
     Active Substance: MUROMONAB-CD3
     Indication: TRANSPLANT REJECTION
     Dosage: UNK
  7. AZATHIOPRINE. [Suspect]
     Active Substance: AZATHIOPRINE
     Indication: IMMUNOSUPPRESSANT DRUG THERAPY
     Dosage: UNK
     Dates: start: 201311
  8. METHYLPREDNISOLONE. [Suspect]
     Active Substance: METHYLPREDNISOLONE
     Indication: TRANSPLANT REJECTION
     Dosage: UNK
  9. ACICLOVIR [Suspect]
     Active Substance: ACYCLOVIR
     Indication: CYTOMEGALOVIRUS INFECTION
     Dosage: 800 MG, TID
     Route: 048

REACTIONS (19)
  - Malnutrition [Unknown]
  - Oesophagopleural fistula [Unknown]
  - Infection [Fatal]
  - Respiratory failure [Unknown]
  - Pneumothorax [Unknown]
  - Gastric fistula [Recovering/Resolving]
  - Drug resistance [Unknown]
  - Weight decreased [Unknown]
  - Gastritis [Recovered/Resolved]
  - Pathogen resistance [Unknown]
  - Gastric ulcer [Unknown]
  - Cytomegalovirus oesophagitis [Unknown]
  - Haematemesis [Unknown]
  - Duodenitis [Recovered/Resolved]
  - Upper gastrointestinal haemorrhage [Unknown]
  - Cytomegalovirus infection reactivation [Fatal]
  - Chest pain [Recovering/Resolving]
  - Oesophageal ulcer [Unknown]
  - Gastrointestinal ulcer [Recovering/Resolving]

NARRATIVE: CASE EVENT DATE: 201403
